FAERS Safety Report 6707102-5 (Version None)
Quarter: 2010Q2

REPORT INFORMATION
  Report Type: 
  Country: None (occurrence: None)
  Receive Date: 20100503
  Receipt Date: 20100427
  Transmission Date: 20101027
  Serious: Yes (Hospitalization)
  Sender: FDA-Public Use
  Company Number: A0856933A

PATIENT
  Sex: Male
  Weight: 61.4 kg

DRUGS (3)
  1. LAPATINIB [Suspect]
     Dosage: 1500MG PER DAY
     Route: 048
  2. CISPLATIN [Suspect]
     Dosage: 100MGM2 CYCLIC
     Route: 042
     Dates: start: 20100322
  3. RADIOTHERAPY [Suspect]
     Route: 061

REACTIONS (5)
  - FEBRILE NEUTROPENIA [None]
  - FEELING COLD [None]
  - FEELING HOT [None]
  - HEADACHE [None]
  - MALAISE [None]
